FAERS Safety Report 6290807-0 (Version None)
Quarter: 2009Q3

REPORT INFORMATION
  Report Type: 
  Country: None (occurrence: None)
  Receive Date: 20090730
  Receipt Date: 20090720
  Transmission Date: 20100115
  Serious: Yes (Other)
  Sender: FDA-Public Use
  Company Number: GB-NOVOPROD-288940

PATIENT
  Sex: Male
  Weight: 77.7 kg

DRUGS (2)
  1. NOVOLOG MIX 70/30 [Suspect]
     Indication: TYPE 2 DIABETES MELLITUS
     Dosage: 26 IU, BID
     Route: 058
     Dates: start: 20060216, end: 20090630
  2. CHEMOTHERAPEUTICS NOS [Concomitant]

REACTIONS (2)
  - PARAESTHESIA [None]
  - URTICARIA [None]
